FAERS Safety Report 8474972 (Version 5)
Quarter: 2013Q4

REPORT INFORMATION
  Report Type: Report from Study
  Country: US (occurrence: US)
  Receive Date: 20120323
  Receipt Date: 20131217
  Transmission Date: 20140711
  Serious: Yes (Hospitalization)
  Sender: FDA-Public Use
  Company Number: US-UCBSA-053636

PATIENT
  Age: 64 Year
  Sex: Male
  Weight: 88.9 kg

DRUGS (13)
  1. CIMZIA [Suspect]
     Indication: CROHN^S DISEASE
     Route: 058
     Dates: start: 20110509, end: 20110613
  2. CIMZIA [Suspect]
     Indication: CROHN^S DISEASE
     Route: 058
     Dates: start: 20110404, end: 20110404
  3. CIMZIA [Suspect]
     Indication: CROHN^S DISEASE
     Route: 058
     Dates: start: 20100429, end: 20110307
  4. FLAGYL [Concomitant]
     Indication: CROHN^S DISEASE
     Route: 042
     Dates: start: 20100331
  5. FLAGYL [Concomitant]
     Indication: CROHN^S DISEASE
     Route: 042
     Dates: start: 20111228, end: 20120112
  6. IBUPROFEN [Concomitant]
     Indication: CROHN^S DISEASE
  7. ZOSYN [Concomitant]
     Indication: CROHN^S DISEASE
     Route: 042
     Dates: start: 20110809, end: 20110812
  8. ZOSYN [Concomitant]
     Indication: CROHN^S DISEASE
     Dosage: 1 GRAM IV
     Route: 042
     Dates: start: 20111228, end: 20120102
  9. BICILLIN [Concomitant]
     Indication: STREPTOCOCCAL INFECTION
     Dosage: WEEKLY INJECTION
  10. OXYCODONE [Concomitant]
  11. FLUCONAZOLE [Concomitant]
  12. VITAMIN D [Concomitant]
  13. B12 [Concomitant]

REACTIONS (1)
  - Cellulitis [Recovering/Resolving]
